FAERS Safety Report 20329693 (Version 2)
Quarter: 2022Q1

REPORT INFORMATION
  Report Type: Spontaneous
  Country: JP (occurrence: JP)
  Receive Date: 20220112
  Receipt Date: 20220218
  Transmission Date: 20220423
  Serious: Yes (Other)
  Sender: FDA-Public Use
  Company Number: JP-NOVARTISPH-NVSJ2022JP000717

PATIENT
  Sex: Male

DRUGS (1)
  1. NEORAL [Suspect]
     Active Substance: CYCLOSPORINE
     Indication: Mixed connective tissue disease
     Dosage: UNK
     Route: 048

REACTIONS (3)
  - Mixed connective tissue disease [Unknown]
  - Disease progression [Unknown]
  - Product use in unapproved indication [Unknown]
